FAERS Safety Report 22199831 (Version 1)
Quarter: 2023Q2

REPORT INFORMATION
  Report Type: Spontaneous
  Country: NL (occurrence: NL)
  Receive Date: 20230412
  Receipt Date: 20230412
  Transmission Date: 20230722
  Serious: Yes (Life-Threatening, Hospitalization)
  Sender: FDA-Public Use
  Company Number: None

PATIENT
  Sex: Female
  Weight: 33 kg

DRUGS (2)
  1. ZOLEDRONIC ACID [Suspect]
     Active Substance: ZOLEDRONIC ACID
     Indication: Bone marrow oedema syndrome
     Dosage: 0.025MG/KG = 0.8MG IN 100ML NACL IN 1 HOUR, ZOLEDRONIC ACID INFOPL CONC 0.8MG/ML / BRAND NAME NOT SP
     Route: 065
     Dates: start: 20221213
  2. CALCIUM CARBONATE\CHOLECALCIFEROL [Concomitant]
     Active Substance: CALCIUM CARBONATE\CHOLECALCIFEROL
     Indication: Product used for unknown indication
     Dosage: 500/800 EH, CALCIUMCARB/COLECALC CHEWABLE TABLET 1.25G/800IE (500MG CA) / CALCI CHEW D3 CHEWABLE TAB
     Route: 065

REACTIONS (1)
  - Hypocalcaemia [Recovered/Resolved]
